FAERS Safety Report 5231306-4 (Version None)
Quarter: 2007Q1

REPORT INFORMATION
  Report Type: 
  Country: None (occurrence: None)
  Receive Date: 20070202
  Receipt Date: 20070126
  Transmission Date: 20070707
  Serious: Yes (Death, Other)
  Sender: FDA-Public Use
  Company Number: 163-21880-07011405

PATIENT
  Age: 59 Year
  Sex: Female

DRUGS (19)
  1. REVLIMID [Suspect]
     Indication: MULTIPLE MYELOMA
     Dosage: 10 MG, 1 IN 1 D, ORAL
     Route: 048
     Dates: start: 20061006, end: 20061001
  2. MS CONTIN [Concomitant]
  3. METOPROLOL TARTRATE [Concomitant]
  4. EFFEXOR [Concomitant]
  5. PREMARIN [Concomitant]
  6. SYNTHROID [Concomitant]
  7. PRILOSEC [Concomitant]
  8. COUMADIN [Concomitant]
  9. LASIX [Concomitant]
  10. BACTRIM [Concomitant]
  11. ACYCLOVIR [Concomitant]
  12. OXYCODONE HCL [Concomitant]
  13. COMPAZINE [Concomitant]
  14. AREDIA [Concomitant]
  15. MULTIVITAMIN [Concomitant]
  16. DECADRON [Concomitant]
  17. VELCADE [Concomitant]
  18. CYTOXAN [Concomitant]
  19. ZOFRAN (ONDANSETRON HYDROCHORIDE) [Concomitant]

REACTIONS (4)
  - ANAEMIA [None]
  - MALIGNANT NEOPLASM PROGRESSION [None]
  - MULTIPLE MYELOMA [None]
  - SEPSIS [None]
